FAERS Safety Report 19378903 (Version 4)
Quarter: 2021Q4

REPORT INFORMATION
  Report Type: Report from Study
  Country: US (occurrence: US)
  Receive Date: 20210606
  Receipt Date: 20211029
  Transmission Date: 20220304
  Serious: Yes (Life-Threatening, Hospitalization)
  Sender: FDA-Public Use
  Company Number: US-BIOGEN-2021BI01016852

PATIENT
  Sex: Female

DRUGS (1)
  1. TYSABRI [Suspect]
     Active Substance: NATALIZUMAB
     Indication: Multiple sclerosis
     Dosage: INFUSED OVER 1 HOUR
     Route: 042
     Dates: start: 20181002, end: 20201027

REACTIONS (8)
  - Sepsis [Unknown]
  - Renal failure [Unknown]
  - Infection [Unknown]
  - Abdominal pain upper [Unknown]
  - Fungal infection [Unknown]
  - Speech disorder [Unknown]
  - Pain in extremity [Unknown]
  - Urinary tract infection [Unknown]
